FAERS Safety Report 9248052 (Version 1)
Quarter: 2013Q2

REPORT INFORMATION
  Report Type: Spontaneous
  Country: US (occurrence: US)
  Receive Date: 20130423
  Receipt Date: 20130423
  Transmission Date: 20140414
  Serious: No
  Sender: FDA-Public Use
  Company Number: US-PFIZER INC-2013125087

PATIENT
  Age: 69 Year
  Sex: Female
  Weight: 51.7 kg

DRUGS (3)
  1. LYRICA [Suspect]
     Indication: NEUROPATHY PERIPHERAL
     Dosage: 75 MG, DAILY
     Dates: start: 20130403, end: 20130415
  2. BENADRYL [Suspect]
     Indication: EYE SWELLING
     Dosage: 50 MG (TAKING TWO 25 MG TOGETHER), 2X/DAY
     Dates: start: 201304
  3. METFORMIN [Concomitant]
     Indication: TYPE 2 DIABETES MELLITUS
     Dosage: 500 MG, DAILY

REACTIONS (3)
  - Eye swelling [Not Recovered/Not Resolved]
  - Eyelid oedema [Not Recovered/Not Resolved]
  - Drug ineffective [Unknown]
